FAERS Safety Report 6714459-8 (Version None)
Quarter: 2010Q2

REPORT INFORMATION
  Report Type: 
  Country: None (occurrence: None)
  Receive Date: 20100506
  Receipt Date: 20100504
  Transmission Date: 20101027
  Serious: Yes (Other)
  Sender: FDA-Public Use
  Company Number: US-MERCK-0802USA03119

PATIENT
  Age: 49 Year
  Sex: Female
  Weight: 89 kg

DRUGS (27)
  1. FOSAMAX [Suspect]
     Indication: OSTEOPOROSIS
     Route: 048
     Dates: start: 20050901
  2. FOSAMAX [Suspect]
     Route: 048
     Dates: start: 20051101, end: 20060901
  3. FOSAMAX [Suspect]
     Route: 048
  4. FOSAMAX [Suspect]
     Indication: OSTEOARTHRITIS
     Route: 048
     Dates: start: 20050901
  5. FOSAMAX [Suspect]
     Route: 048
     Dates: start: 20051101, end: 20060901
  6. FOSAMAX [Suspect]
     Route: 048
  7. [THERAPY UNSPECIFIED] [Concomitant]
     Route: 065
     Dates: start: 19950101
  8. [THERAPY UNSPECIFIED] [Concomitant]
     Indication: HYPERTENSION
     Route: 065
     Dates: start: 19900101
  9. [THERAPY UNSPECIFIED] [Concomitant]
     Indication: HYPERCHOLESTEROLAEMIA
     Route: 065
     Dates: start: 19900101
  10. [THERAPY UNSPECIFIED] [Concomitant]
     Indication: RHEUMATOID ARTHRITIS
     Route: 065
     Dates: start: 19900101
  11. METOCLOPRAMIDE [Concomitant]
     Indication: GASTROOESOPHAGEAL REFLUX DISEASE
     Route: 065
     Dates: start: 20000101
  12. SYNTHROID [Concomitant]
     Indication: THYROID DISORDER
     Route: 065
     Dates: start: 19900101
  13. DETROL [Concomitant]
     Indication: INCONTINENCE
     Route: 065
     Dates: start: 20000101, end: 20070101
  14. PRILOSEC [Concomitant]
     Indication: GASTROOESOPHAGEAL REFLUX DISEASE
     Route: 065
     Dates: start: 20000101
  15. CYCLOBENZAPRINE HYDROCHLORIDE [Concomitant]
     Indication: PAIN
     Route: 065
     Dates: start: 19900101
  16. SENOKOT [Concomitant]
     Indication: CONSTIPATION
     Route: 065
     Dates: start: 20000101
  17. TRAZODONE HYDROCHLORIDE [Concomitant]
     Indication: PAIN
     Route: 065
     Dates: start: 20000101
  18. TRAZODONE HYDROCHLORIDE [Concomitant]
     Indication: DEPRESSION
     Route: 065
     Dates: start: 20000101
  19. ALPRAZOLAM [Concomitant]
     Indication: ANXIETY
     Route: 065
     Dates: start: 20000101, end: 20070101
  20. FLONASE [Concomitant]
     Indication: HYPERSENSITIVITY
     Route: 065
     Dates: start: 20010101
  21. AMBIEN [Concomitant]
     Indication: SOMNOLENCE
     Route: 065
     Dates: start: 20010101, end: 20060101
  22. BACLOFEN [Concomitant]
     Indication: PAIN
     Route: 065
     Dates: start: 20020101
  23. ZYRTEC [Concomitant]
     Indication: HYPERSENSITIVITY
     Route: 065
     Dates: start: 20030101
  24. MIDRIN [Concomitant]
     Indication: HEADACHE
     Route: 065
     Dates: start: 20030101, end: 20060101
  25. DIAZEPAM [Concomitant]
     Indication: ANXIETY
     Route: 065
     Dates: start: 20030101, end: 20080101
  26. SUMATRIPTAN SUCCINATE (IMITREX) [Concomitant]
     Indication: HEADACHE
     Route: 065
     Dates: start: 20040101, end: 20060101
  27. PREVACID [Concomitant]
     Indication: GASTROOESOPHAGEAL REFLUX DISEASE
     Route: 065
     Dates: start: 20040101

REACTIONS (22)
  - BLEPHARITIS [None]
  - CATARACT NUCLEAR [None]
  - CHEST PAIN [None]
  - CONTUSION [None]
  - DRY EYE [None]
  - EYELID DISORDER [None]
  - FALL [None]
  - GASTRITIS [None]
  - HEADACHE [None]
  - HYPOXIA [None]
  - JOINT SPRAIN [None]
  - NAUSEA [None]
  - ORAL DISORDER [None]
  - OSTEONECROSIS OF JAW [None]
  - PAIN IN JAW [None]
  - RECTOCELE [None]
  - RETINOPATHY HYPERTENSIVE [None]
  - SLEEP APNOEA SYNDROME [None]
  - TOOTH INFECTION [None]
  - TRIGGER FINGER [None]
  - TRISMUS [None]
  - VOMITING [None]
